FAERS Safety Report 6943272-1 (Version None)
Quarter: 2010Q3

REPORT INFORMATION
  Report Type: 
  Country: None (occurrence: None)
  Receive Date: 20100826
  Receipt Date: 20100802
  Transmission Date: 20110219
  Serious: No
  Sender: FDA-Public Use
  Company Number: GB-ABBOTT-08P-167-0487336-00

PATIENT
  Sex: Female
  Weight: 62.5 kg

DRUGS (6)
  1. HUMIRA [Suspect]
     Indication: RHEUMATOID ARTHRITIS
     Dates: start: 20080501
  2. VENTOLIN [Suspect]
     Indication: ASTHMA
     Route: 055
  3. GAVISCON [Suspect]
     Indication: GASTROOESOPHAGEAL REFLUX DISEASE
     Route: 048
  4. CLENIL [Suspect]
     Indication: ASTHMA
     Dosage: 2 IN 2 DAYS AS NEEDED
     Route: 055
  5. ZOTON [Suspect]
     Indication: GASTROOESOPHAGEAL REFLUX DISEASE
     Route: 048
  6. ACETAMINOPHEN WITH PROPOXYPHENE HCL TAB [Suspect]
     Indication: ANALGESIC THERAPY
     Dosage: DAILY DOSE: 4-8 TABLETS, UNIT DOSE 1-2 TABLETS AS NEEDED
     Route: 048

REACTIONS (4)
  - DYSGEUSIA [None]
  - HAEMOPTYSIS [None]
  - MOUTH HAEMORRHAGE [None]
  - RASH [None]
